FAERS Safety Report 15265809 (Version 1)
Quarter: 2018Q3

REPORT INFORMATION
  Report Type: Report from Study
  Country: JP (occurrence: JP)
  Receive Date: 20180810
  Receipt Date: 20180810
  Transmission Date: 20181010
  Serious: Yes (Other)
  Sender: FDA-Public Use
  Company Number: JP-MYLANLABS-2018M1060789

PATIENT
  Age: 45 Year
  Sex: Male

DRUGS (2)
  1. TRANILAST [Interacting]
     Active Substance: TRANILAST
     Indication: BECKER^S MUSCULAR DYSTROPHY
     Dosage: FOR 3 MONTHS
     Route: 065
  2. WARFARIN [Suspect]
     Active Substance: WARFARIN
     Indication: CARDIAC FAILURE
     Route: 065

REACTIONS (5)
  - Heart rate increased [Not Recovered/Not Resolved]
  - Condition aggravated [Not Recovered/Not Resolved]
  - Ventricular extrasystoles [Not Recovered/Not Resolved]
  - International normalised ratio increased [Recovering/Resolving]
  - Drug interaction [Recovering/Resolving]
